FAERS Safety Report 6602378-7 (Version None)
Quarter: 2010Q1

REPORT INFORMATION
  Report Type: 
  Country: None (occurrence: None)
  Receive Date: 20100225
  Receipt Date: 20100218
  Transmission Date: 20100710
  Serious: Yes (Death, Hospitalization)
  Sender: FDA-Public Use
  Company Number: A0846387A

PATIENT
  Age: 78 Year
  Sex: Male

DRUGS (1)
  1. PROMACTA [Suspect]
     Dosage: 50MG PER DAY
     Dates: start: 20100101, end: 20100101

REACTIONS (2)
  - DEATH [None]
  - TRANSIENT ISCHAEMIC ATTACK [None]
